FAERS Safety Report 7908518-1 (Version None)
Quarter: 2011Q4

REPORT INFORMATION
  Report Type: 
  Country: None (occurrence: None)
  Receive Date: 20111110
  Receipt Date: 20111110
  Transmission Date: 20120403
  Serious: No
  Sender: FDA-Public Use
  Company Number: None

PATIENT

DRUGS (2)
  1. LORAZEPAM [Suspect]
     Dosage: INJECTABLE
     Route: 042
  2. LORAZEPAM [Suspect]
     Dosage: INJECTABLE
     Route: 042

REACTIONS (4)
  - INCORRECT DOSE ADMINISTERED [None]
  - MEDICATION ERROR [None]
  - SYRINGE ISSUE [None]
  - SOMNOLENCE [None]
